FAERS Safety Report 8308609-X (Version None)
Quarter: 2012Q2

REPORT INFORMATION
  Report Type: 
  Country: None (occurrence: None)
  Receive Date: 20120424
  Receipt Date: 20120418
  Transmission Date: 20120825
  Serious: Yes (Disabling)
  Sender: FDA-Public Use
  Company Number: FI-ROCHE-744270

PATIENT
  Sex: Female

DRUGS (3)
  1. CYCLOPHOSPHAMIDE [Suspect]
     Indication: LUPUS VASCULITIS
     Dosage: SIX 1000 MG CYCLES
     Route: 042
     Dates: start: 20090526, end: 20091021
  2. MABTHERA [Suspect]
     Indication: LUPUS VASCULITIS
     Dosage: FREQUENCY: TWO INFUSIONS
     Route: 042
     Dates: start: 20091111, end: 20091229
  3. CORTISONE ACETATE [Concomitant]
     Indication: LUPUS VASCULITIS

REACTIONS (1)
  - PROGRESSIVE MULTIFOCAL LEUKOENCEPHALOPATHY [None]
